FAERS Safety Report 6684960-4 (Version None)
Quarter: 2010Q2

REPORT INFORMATION
  Report Type: 
  Country: None (occurrence: None)
  Receive Date: 20100416
  Receipt Date: 20100407
  Transmission Date: 20101027
  Serious: Yes (Hospitalization)
  Sender: FDA-Public Use
  Company Number: US-AMGEN-QUU397570

PATIENT
  Sex: Female
  Weight: 80.4 kg

DRUGS (6)
  1. ENBREL [Suspect]
     Indication: RHEUMATOID ARTHRITIS
     Route: 058
     Dates: start: 20040220
  2. METHOTREXATE [Concomitant]
     Route: 048
  3. INSULIN [Concomitant]
  4. LEVOTHYROXINE [Concomitant]
  5. IBUPROFEN [Concomitant]
  6. CALCIUM WITH VITAMIN D [Concomitant]

REACTIONS (6)
  - ARTHRALGIA [None]
  - BACK PAIN [None]
  - FALL [None]
  - GAIT DISTURBANCE [None]
  - HUMERUS FRACTURE [None]
  - RHEUMATOID ARTHRITIS [None]
